FAERS Safety Report 4799693-9 (Version None)
Quarter: 2005Q4

REPORT INFORMATION
  Report Type: 
  Country: None (occurrence: None)
  Receive Date: 20051013
  Receipt Date: 20050926
  Transmission Date: 20060501
  Serious: Yes (Other)
  Sender: FDA-Public Use
  Company Number: 2005134090

PATIENT
  Age: 39 Year
  Sex: Female

DRUGS (2)
  1. AROMASIN [Suspect]
     Indication: BREAST CANCER
     Dosage: 25 MG (25 MG, 1 IN 1 D), ORAL
     Route: 048
     Dates: start: 20050905, end: 20050907
  2. DECAPEPTYL (GONADORELIN) [Suspect]
     Indication: BREAST CANCER
     Dosage: 3.75 MG (3.75 MG, 1 IN 28 D), INTRAVENOUS
     Route: 042
     Dates: start: 20050609, end: 20050901

REACTIONS (2)
  - DRUG HYPERSENSITIVITY [None]
  - PYREXIA [None]
